FAERS Safety Report 9961888 (Version 1)
Quarter: 2014Q1

REPORT INFORMATION
  Report Type: Spontaneous
  Country: US (occurrence: None)
  Receive Date: 20140304
  Receipt Date: 20140304
  Transmission Date: 20141002
  Serious: Yes (Hospitalization)
  Sender: FDA-Public Use
  Company Number: None

PATIENT
  Age: 40 Year
  Sex: Male
  Weight: 90.5 kg

DRUGS (2)
  1. LISINOPRIL [Suspect]
     Indication: HYPERTENSION
     Route: 048
     Dates: start: 20121227, end: 20131103
  2. SULINDAC [Suspect]
     Indication: PAIN
     Route: 048
     Dates: start: 20130215, end: 20131103

REACTIONS (7)
  - Abdominal pain [None]
  - Vomiting [None]
  - Night sweats [None]
  - Chills [None]
  - Vision blurred [None]
  - Palpitations [None]
  - Anuria [None]
